FAERS Safety Report 7778058-1 (Version None)
Quarter: 2011Q3

REPORT INFORMATION
  Report Type: 
  Country: None (occurrence: None)
  Receive Date: 20110926
  Receipt Date: 20110920
  Transmission Date: 20111222
  Serious: No
  Sender: FDA-Public Use
  Company Number: JP-BAYER-200914434BYL

PATIENT
  Age: 81 Year
  Sex: Male
  Weight: 54 kg

DRUGS (9)
  1. URSODIOL [Concomitant]
     Route: 048
  2. GLYCYRRHIZIC ACID [Concomitant]
     Route: 048
  3. AMINO ACIDS [Concomitant]
     Route: 048
  4. NEXAVAR [Suspect]
     Dosage: 200 MG, QD
     Route: 048
     Dates: start: 20090901, end: 20091104
  5. FUROSEMIDE [Concomitant]
     Route: 048
  6. NEXAVAR [Suspect]
     Indication: HEPATIC NEOPLASM MALIGNANT
     Dosage: 200 MG, QD
     Route: 048
     Dates: start: 20090727, end: 20090825
  7. LACTOMIN [Concomitant]
     Route: 048
  8. METHIONINE [Concomitant]
     Dosage: UNK
     Route: 048
  9. RABEPRAZOLE SODIUM [Concomitant]
     Route: 048

REACTIONS (2)
  - HEPATIC FUNCTION ABNORMAL [None]
  - PALMAR-PLANTAR ERYTHRODYSAESTHESIA SYNDROME [None]
